FAERS Safety Report 16821075 (Version 2)
Quarter: 2019Q3

REPORT INFORMATION
  Report Type: Spontaneous
  Country: IT (occurrence: IT)
  Receive Date: 20190918
  Receipt Date: 20190927
  Transmission Date: 20191005
  Serious: Yes (Hospitalization)
  Sender: FDA-Public Use
  Company Number: IT-TEVA-2019-IT-1107631

PATIENT
  Age: 85 Year
  Sex: Female

DRUGS (6)
  1. LASIX [Concomitant]
     Active Substance: FUROSEMIDE
  2. TORVAST 20 MG COMPRESSE RIVESTITE CON FILM [Concomitant]
  3. ALLOPURINOL. [Suspect]
     Active Substance: ALLOPURINOL
     Dates: start: 20190601, end: 20190703
  4. NIMODIPINE. [Concomitant]
     Active Substance: NIMODIPINE
  5. CARDIOASPIRIN 100 MG COMPRESSE GASTRORESISTENTI [Concomitant]
     Active Substance: ASPIRIN
  6. TIARTAN 600 MG/12,5 MG, COMPRESSE RIVESTITE CON FILM [Concomitant]

REACTIONS (2)
  - Eosinophilia [Recovered/Resolved]
  - Rash erythematous [Recovered/Resolved]

NARRATIVE: CASE EVENT DATE: 20190703
